FAERS Safety Report 7503633-9 (Version None)
Quarter: 2011Q2

REPORT INFORMATION
  Report Type: 
  Country: None (occurrence: None)
  Receive Date: 20110518
  Receipt Date: 20110509
  Transmission Date: 20111010
  Serious: Yes (Other)
  Sender: FDA-Public Use
  Company Number: DSA_45576_2011

PATIENT
  Sex: Female

DRUGS (1)
  1. BUPROPION HYDROCHLORIDE [Suspect]
     Indication: DEPRESSION
     Dosage: 150 MG, QD, ORAL
     Route: 048
     Dates: start: 20110506

REACTIONS (3)
  - DRUG INEFFECTIVE [None]
  - MOVEMENT DISORDER [None]
  - ANXIETY [None]
